FAERS Safety Report 5353910-5 (Version None)
Quarter: 2007Q2

REPORT INFORMATION
  Report Type: 
  Country: None (occurrence: None)
  Receive Date: 20070521
  Receipt Date: 20070123
  Transmission Date: 20071010
  Serious: No
  Sender: FDA-Public Use
  Company Number: WAES 0701USA04102

PATIENT
  Age: 56 Year
  Sex: Female
  Weight: 81.6475 kg

DRUGS (11)
  1. JANUVIA [Suspect]
     Indication: DIABETES MELLITUS NON-INSULIN-DEPENDENT
     Dosage: 100 MG/DAILY/PO
     Route: 048
     Dates: start: 20061212
  2. BUSPAR [Concomitant]
  3. COZAAR [Concomitant]
  4. LANTUS [Concomitant]
  5. LEXAPRO [Concomitant]
  6. NEURONTIN [Concomitant]
  7. PREVACID [Concomitant]
  8. ATORVASTATIN CALCIUM [Concomitant]
  9. CLONAZEPAM [Concomitant]
  10. METFORMIN HCL [Concomitant]
  11. METOPROLOL SUCCINATE [Concomitant]

REACTIONS (4)
  - PHARYNGITIS [None]
  - SINUSITIS [None]
  - TYMPANIC MEMBRANE DISORDER [None]
  - UPPER RESPIRATORY TRACT INFECTION [None]
